FAERS Safety Report 9161030 (Version 1)
Quarter: 2013Q1

REPORT INFORMATION
  Report Type: Spontaneous
  Country: US (occurrence: US)
  Receive Date: 20130313
  Receipt Date: 20130313
  Transmission Date: 20140127
  Serious: Yes (Hospitalization, Other)
  Sender: FDA-Public Use
  Company Number: US-AMGEN-USASP2013016710

PATIENT
  Age: 21 Year
  Sex: Female

DRUGS (4)
  1. ENBREL [Suspect]
     Indication: PSORIATIC ARTHROPATHY
     Dosage: 25.0 MG, 2X/WEEK
     Route: 058
  2. LAMOTRIGINE [Concomitant]
     Dosage: UNK
     Route: 065
  3. SULFASALAZINE [Concomitant]
     Dosage: UNK
     Route: 065
  4. INDOMETACIN [Concomitant]
     Dosage: UNK

REACTIONS (1)
  - Mania [Recovering/Resolving]
